FAERS Safety Report 9414973 (Version 1)
Quarter: 2013Q3

REPORT INFORMATION
  Report Type: Spontaneous
  Country: US (occurrence: US)
  Receive Date: 20130723
  Receipt Date: 20130723
  Transmission Date: 20140515
  Serious: Yes (Other)
  Sender: FDA-Public Use
  Company Number: US-PFIZER INC-2013205666

PATIENT
  Age: 61 Year
  Sex: Male
  Weight: 126.98 kg

DRUGS (7)
  1. DIMETAPP [Suspect]
     Indication: COUGH
     Dosage: UNK
     Dates: start: 20130308, end: 2013
  2. METFORMIN [Concomitant]
     Indication: DIABETES MELLITUS
     Dosage: UNK
  3. ZIPRASIDONE [Concomitant]
     Dosage: UNK
  4. GABAPENTIN [Concomitant]
     Dosage: UNK
  5. METHOCARBAMOL [Concomitant]
     Dosage: UNK
  6. TRIAZOLAM [Concomitant]
     Dosage: UNK
  7. MOTRIN [Concomitant]
     Dosage: UNK

REACTIONS (3)
  - Malaise [Unknown]
  - Blood triglycerides increased [Unknown]
  - Cardiac enzymes increased [Unknown]
